FAERS Safety Report 24926059 (Version 1)
Quarter: 2025Q1

REPORT INFORMATION
  Report Type: Spontaneous
  Country: US (occurrence: US)
  Receive Date: 20250205
  Receipt Date: 20250205
  Transmission Date: 20250409
  Serious: No
  Sender: BEIGENE
  Company Number: US-BEIGENE-BGN-2025-001705

PATIENT
  Age: 86 Year

DRUGS (1)
  1. BRUKINSA [Suspect]
     Active Substance: ZANUBRUTINIB
     Indication: Chronic lymphocytic leukaemia
     Dosage: 160 MILLIGRAM, BID

REACTIONS (1)
  - Peripheral swelling [Not Recovered/Not Resolved]
